FAERS Safety Report 9167331 (Version 1)
Quarter: 2013Q1

REPORT INFORMATION
  Report Type: Spontaneous
  Country: US (occurrence: None)
  Receive Date: 20130314
  Receipt Date: 20130314
  Transmission Date: 20140127
  Serious: Yes (Hospitalization)
  Sender: FDA-Public Use
  Company Number: None

PATIENT
  Sex: Male
  Weight: 9.1 kg

DRUGS (19)
  1. METHOTREXATE [Suspect]
     Dates: end: 20130306
  2. CYTARABINE [Suspect]
     Dates: end: 20130306
  3. HYDROCORTISONE [Suspect]
     Dates: end: 201303
  4. LEUCOVORIN CALCIUM [Suspect]
     Dates: end: 20130309
  5. ALBUMIN [Concomitant]
  6. CALCIUM GLUCONATE [Concomitant]
  7. DOPAMINE [Concomitant]
  8. FENTANYL [Concomitant]
  9. FENTANYL CITRATE [Suspect]
  10. FILGRASTIM [Concomitant]
  11. FUROSEMIDE [Concomitant]
  12. LORAZEPAM [Concomitant]
  13. MAGNESIUM SULFATE [Concomitant]
  14. MILRANONE [Concomitant]
  15. NOREPINEPHRINE [Concomitant]
  16. PENTAMIDINE [Concomitant]
  17. POTASSIUM CHLORIDE [Concomitant]
  18. SODIUM BICARBONATE [Concomitant]
  19. VANCOMYCIN [Concomitant]

REACTIONS (8)
  - Generalised erythema [None]
  - Pyrexia [None]
  - Neutrophil count decreased [None]
  - Sepsis [None]
  - Hypotension [None]
  - Tachycardia [None]
  - Dermatitis bullous [None]
  - Drug clearance decreased [None]
